FAERS Safety Report 10640584 (Version 1)
Quarter: 2014Q4

REPORT INFORMATION
  Report Type: Spontaneous
  Country: US (occurrence: None)
  Receive Date: 20141208
  Receipt Date: 20141208
  Transmission Date: 20150529
  Serious: Yes (Death)
  Sender: FDA-Public Use
  Company Number: None

PATIENT
  Age: 62 Year
  Sex: Male
  Weight: 71.67 kg

DRUGS (7)
  1. ONDANSETRON [Concomitant]
     Active Substance: ONDANSETRON
  2. IMODIUM [Concomitant]
     Active Substance: LOPERAMIDE HYDROCHLORIDE
  3. METFORMIN [Concomitant]
     Active Substance: METFORMIN HYDROCHLORIDE
  4. CISPLATIN. [Suspect]
     Active Substance: CISPLATIN
     Indication: TONGUE NEOPLASM MALIGNANT STAGE UNSPECIFIED
     Route: 042
     Dates: start: 20140911, end: 20140911
  5. FLUOROURACIL. [Suspect]
     Active Substance: FLUOROURACIL
     Indication: TONGUE NEOPLASM MALIGNANT STAGE UNSPECIFIED
     Route: 042
     Dates: start: 20140911, end: 20140915
  6. ASPIRIN. [Concomitant]
     Active Substance: ASPIRIN
  7. CABAZITAXEL [Suspect]
     Active Substance: CABAZITAXEL
     Indication: TONGUE NEOPLASM MALIGNANT STAGE UNSPECIFIED
     Route: 042
     Dates: start: 20140911, end: 20140911

REACTIONS (11)
  - Hypokalaemia [None]
  - Escherichia infection [None]
  - Bacterial test positive [None]
  - Anaemia [None]
  - Pneumonia [None]
  - Urinary tract infection [None]
  - Dehydration [None]
  - Septic shock [None]
  - Acute respiratory failure [None]
  - Acute kidney injury [None]
  - Hypomagnesaemia [None]

NARRATIVE: CASE EVENT DATE: 20140922
